FAERS Safety Report 21928033 (Version 2)
Quarter: 2025Q1

REPORT INFORMATION
  Report Type: Spontaneous
  Country: US (occurrence: US)
  Receive Date: 20230130
  Receipt Date: 20250310
  Transmission Date: 20250409
  Serious: Yes (Other)
  Sender: PFIZER
  Company Number: US-PFIZER INC-202300041398

PATIENT
  Age: 73 Year
  Sex: Female

DRUGS (1)
  1. FLUCONAZOLE [Suspect]
     Active Substance: FLUCONAZOLE

REACTIONS (3)
  - Respiratory distress [Unknown]
  - Drug hypersensitivity [Unknown]
  - Nausea [Unknown]
